FAERS Safety Report 7467368-3 (Version None)
Quarter: 2011Q2

REPORT INFORMATION
  Report Type: 
  Country: None (occurrence: None)
  Receive Date: 20110509
  Receipt Date: 20101223
  Transmission Date: 20111010
  Serious: Yes (Other)
  Sender: FDA-Public Use
  Company Number: US-ALEXION-A201001620

PATIENT
  Sex: Male

DRUGS (11)
  1. POTASSIUM CHLORIDE [Concomitant]
     Dosage: 20 MEQ, QD
     Route: 048
  2. VYTORIN [Concomitant]
     Dosage: 10/20 MG
     Route: 048
  3. FOLIC ACID [Concomitant]
     Dosage: 1 MG, BID
     Route: 048
  4. COUMADIN [Concomitant]
     Dosage: 7.5 MG, T,W,TH,SAT,SUN
     Route: 048
  5. SOLIRIS [Suspect]
     Indication: PAROXYSMAL NOCTURNAL HAEMOGLOBINURIA
     Dosage: 600 MG, QW
     Route: 042
     Dates: start: 20100701
  6. SOLIRIS [Suspect]
     Dosage: 900 MG, Q2W
     Route: 042
  7. SYMBICORT [Concomitant]
     Dosage: UNK
  8. XANAX [Concomitant]
     Dosage: 0.5 MG, BID
     Route: 048
  9. LOTREL [Concomitant]
     Dosage: 5/40 MG
     Route: 048
  10. LASIX [Concomitant]
     Dosage: 40 MG, QD-BID
     Route: 048
  11. COUMADIN [Concomitant]
     Dosage: 10 MG, MON + FRI
     Route: 048

REACTIONS (2)
  - CHRONIC LYMPHOCYTIC LEUKAEMIA [None]
  - NASOPHARYNGITIS [None]
